FAERS Safety Report 8827614 (Version 6)
Quarter: 2012Q4

REPORT INFORMATION
  Report Type: Report from Study
  Country: FR (occurrence: FR)
  Receive Date: 20121008
  Receipt Date: 20121212
  Transmission Date: 20130627
  Serious: Yes (Hospitalization)
  Sender: FDA-Public Use
  Company Number: FR-MILLENNIUM PHARMACEUTICALS, INC.-2012-06817

PATIENT

DRUGS (7)
  1. VELCADE [Suspect]
     Indication: MANTLE CELL LYMPHOMA
     Dosage: 2.4 mg, Cyclic
     Route: 058
     Dates: start: 20120430, end: 20120510
  2. VELCADE [Suspect]
     Dosage: 2.35 mg, UNK
     Route: 065
     Dates: start: 20120529, end: 20120723
  3. LEVACT [Suspect]
     Indication: MANTLE CELL LYMPHOMA
     Dosage: 165 mg, Cyclic
     Route: 042
     Dates: start: 20120430, end: 20120501
  4. LEVACT [Suspect]
     Dosage: 160 mg, UNK
     Route: 065
     Dates: start: 20120529, end: 20120723
  5. MABTHERA [Suspect]
     Indication: MANTLE CELL LYMPHOMA
     Dosage: 700 mg, Cyclic
     Route: 042
     Dates: start: 20120430, end: 20120723
  6. DEXAMETHASONE [Suspect]
     Indication: MANTLE CELL LYMPHOMA
     Dosage: 40 mg, UNK
     Route: 042
     Dates: start: 20120430, end: 20120723
  7. LASILIX                            /00032601/ [Concomitant]
     Indication: HYPERTENSIVE HEART DISEASE
     Dosage: UNK
     Dates: start: 20120505

REACTIONS (3)
  - Hypertensive heart disease [Recovered/Resolved]
  - Sciatica [Recovered/Resolved]
  - Haematoma [Recovered/Resolved]
